FAERS Safety Report 5920147-8 (Version None)
Quarter: 2008Q4

REPORT INFORMATION
  Report Type: 
  Country: None (occurrence: None)
  Receive Date: 20081015
  Receipt Date: 20081015
  Transmission Date: 20090506
  Serious: No
  Sender: FDA-Public Use
  Company Number: None

PATIENT
  Age: 76 Year
  Sex: Male
  Weight: 96.43 kg

DRUGS (2)
  1. VORICONAZOLE [Suspect]
     Indication: FEBRILE NEUTROPENIA
     Dosage: 300 MG BID PO
     Route: 048
     Dates: start: 20080812, end: 20080826
  2. DECITABINE [Suspect]
     Indication: ACUTE MYELOID LEUKAEMIA
     Dosage: 40 MG EVERY DAY IV
     Route: 042
     Dates: start: 20080819, end: 20080821

REACTIONS (1)
  - HEPATIC ENZYME INCREASED [None]
